FAERS Safety Report 8809417 (Version 5)
Quarter: 2013Q2

REPORT INFORMATION
  Report Type: Spontaneous
  Country: US (occurrence: US)
  Receive Date: 20120926
  Receipt Date: 20130401
  Transmission Date: 20140414
  Serious: Yes (Hospitalization, Other)
  Sender: FDA-Public Use
  Company Number: US-ASTRAZENECA-2012SE72691

PATIENT
  Age: 56 Year
  Sex: Female

DRUGS (3)
  1. NEXIUM [Suspect]
     Route: 048
  2. OMEPRAZOLE [Suspect]
     Route: 048
  3. CRESTOR [Suspect]
     Route: 048

REACTIONS (18)
  - Fall [Unknown]
  - Large intestinal haemorrhage [Unknown]
  - Haemoptysis [Unknown]
  - Cardiac disorder [Unknown]
  - Head injury [Unknown]
  - Thrombosis [Unknown]
  - Anuria [Unknown]
  - Anaemia [Unknown]
  - Haemorrhage [Unknown]
  - Decreased appetite [Unknown]
  - Infection [Unknown]
  - Systemic lupus erythematosus [Unknown]
  - Ulcer [Unknown]
  - Vomiting [Unknown]
  - Diabetes mellitus [Unknown]
  - Amnesia [Unknown]
  - Drug dose omission [Unknown]
  - Drug ineffective [Unknown]
